FAERS Safety Report 18419495 (Version 1)
Quarter: 2020Q4

REPORT INFORMATION
  Report Type: Spontaneous
  Country: US (occurrence: US)
  Receive Date: 20201023
  Receipt Date: 20201023
  Transmission Date: 20210114
  Serious: No
  Sender: FDA-Public Use
  Company Number: None

PATIENT
  Age: 86 Year
  Sex: Male
  Weight: 90 kg

DRUGS (1)
  1. MIRABEGRON (MIRABEGRON 25MG SA TAB) [Suspect]
     Active Substance: MIRABEGRON
     Route: 048
     Dates: start: 20200730, end: 20200924

REACTIONS (1)
  - Bladder pain [None]

NARRATIVE: CASE EVENT DATE: 20200924
